FAERS Safety Report 6693220-7 (Version None)
Quarter: 2010Q2

REPORT INFORMATION
  Report Type: 
  Country: None (occurrence: None)
  Receive Date: 20100421
  Receipt Date: 20100421
  Transmission Date: 20101027
  Serious: No
  Sender: FDA-Public Use
  Company Number: None

PATIENT
  Sex: Male
  Weight: 122.4712 kg

DRUGS (2)
  1. CADUET [Suspect]
     Indication: HYPERTENSION
     Dosage: ONE ONCE DAILY PO
     Route: 048
     Dates: start: 20070228, end: 20100315
  2. LIPITOR [Suspect]
     Indication: HYPERTENSION
     Dosage: ONE ONCE DAILY PO
     Route: 048
     Dates: start: 20041002, end: 20071115

REACTIONS (5)
  - AGRAPHIA [None]
  - INSOMNIA [None]
  - MYALGIA [None]
  - TREMOR [None]
  - UNEVALUABLE EVENT [None]
